FAERS Safety Report 16831229 (Version 5)
Quarter: 2021Q2

REPORT INFORMATION
  Report Type: Spontaneous
  Country: US (occurrence: US)
  Receive Date: 20190920
  Receipt Date: 20210628
  Transmission Date: 20210716
  Serious: Yes (Other)
  Sender: FDA-Public Use
  Company Number: US-GILEAD-2019-0428481

PATIENT
  Age: 49 Year
  Sex: Male
  Weight: 79.38 kg

DRUGS (31)
  1. TRUVADA [Suspect]
     Active Substance: EMTRICITABINE\TENOFOVIR DISOPROXIL FUMARATE
     Dosage: UNK
     Route: 048
     Dates: start: 2012, end: 2016
  2. CORTISONE [Concomitant]
     Active Substance: CORTISONE
  3. TRIZIVIR [Concomitant]
     Active Substance: ABACAVIR SULFATE\LAMIVUDINE\ZIDOVUDINE
  4. ESOMEPRAZOLE. [Concomitant]
     Active Substance: ESOMEPRAZOLE MAGNESIUM
  5. VANCOMYCIN [Concomitant]
     Active Substance: VANCOMYCIN
  6. BIKTARVY [Concomitant]
     Active Substance: BICTEGRAVIR SODIUM\EMTRICITABINE\TENOFOVIR ALAFENAMIDE FUMARATE
     Indication: HIV INFECTION
  7. ASPIRIN [ACETYLSALICYLIC ACID] [Concomitant]
     Active Substance: ASPIRIN
  8. ATORVASTATIN [Concomitant]
     Active Substance: ATORVASTATIN
  9. SUSTIVA [Concomitant]
     Active Substance: EFAVIRENZ
  10. ZERIT [Concomitant]
     Active Substance: STAVUDINE
  11. TRUVADA [Suspect]
     Active Substance: EMTRICITABINE\TENOFOVIR DISOPROXIL FUMARATE
     Indication: HIV INFECTION
     Dosage: UNK
     Route: 048
     Dates: start: 2006, end: 2016
  12. VIREAD [Suspect]
     Active Substance: TENOFOVIR DISOPROXIL FUMARATE
     Indication: HIV INFECTION
     Dosage: UNK
     Route: 065
     Dates: start: 2001, end: 2006
  13. ATRIPLA [Suspect]
     Active Substance: EFAVIRENZ\EMTRICITABINE\TENOFOVIR DISOPROXIL FUMARATE
     Indication: HIV INFECTION
     Dosage: UNK
     Route: 065
     Dates: start: 2006, end: 2012
  14. DESCOVY [Concomitant]
     Active Substance: EMTRICITABINE\TENOFOVIR ALAFENAMIDE FUMARATE
     Indication: HIV INFECTION
  15. ACYCLOVIR [ACICLOVIR] [Concomitant]
     Active Substance: ACYCLOVIR
  16. WARFARIN [Concomitant]
     Active Substance: WARFARIN
  17. LASIX [Concomitant]
     Active Substance: FUROSEMIDE
  18. METHYLPREDNISOLONE. [Concomitant]
     Active Substance: METHYLPREDNISOLONE
  19. PHENOBARBITAL. [Concomitant]
     Active Substance: PHENOBARBITAL
  20. RANITIDINE. [Concomitant]
     Active Substance: RANITIDINE
  21. OMEPRAZOLE. [Concomitant]
     Active Substance: OMEPRAZOLE
  22. BACTRIM [Concomitant]
     Active Substance: SULFAMETHOXAZOLE\TRIMETHOPRIM
  23. CISPLATIN. [Concomitant]
     Active Substance: CISPLATIN
  24. PENICILLIN NOS [Concomitant]
     Active Substance: PENICILLIN
  25. VIRACEPT [Concomitant]
     Active Substance: NELFINAVIR MESYLATE
  26. VIRAMUNE [Concomitant]
     Active Substance: NEVIRAPINE
  27. FAMOTIDINE. [Concomitant]
     Active Substance: FAMOTIDINE
  28. HEPARIN [Concomitant]
     Active Substance: HEPARIN SODIUM
  29. PREDNISOLONE. [Concomitant]
     Active Substance: PREDNISOLONE
  30. RESCRIPTOR [Concomitant]
     Active Substance: DELAVIRDINE MESYLATE
  31. TIVICAY [Concomitant]
     Active Substance: DOLUTEGRAVIR SODIUM

REACTIONS (19)
  - Clavicle fracture [Not Recovered/Not Resolved]
  - Osteonecrosis [Not Recovered/Not Resolved]
  - Anxiety [Not Recovered/Not Resolved]
  - Pain [Not Recovered/Not Resolved]
  - Anhedonia [Not Recovered/Not Resolved]
  - Spinal osteoarthritis [Unknown]
  - Bone density decreased [Unknown]
  - Osteoarthritis [Recovered/Resolved]
  - Blood creatinine increased [Not Recovered/Not Resolved]
  - Emotional distress [Not Recovered/Not Resolved]
  - Rib fracture [Unknown]
  - Chronic kidney disease [Unknown]
  - Renal failure [Unknown]
  - Intervertebral disc protrusion [Not Recovered/Not Resolved]
  - Spinal stenosis [Not Recovered/Not Resolved]
  - Economic problem [Not Recovered/Not Resolved]
  - Glomerular filtration rate decreased [Not Recovered/Not Resolved]
  - Cervical vertebral fracture [Unknown]
  - Bone loss [Unknown]

NARRATIVE: CASE EVENT DATE: 20151126
